FAERS Safety Report 15639676 (Version 1)
Quarter: 2018Q4

REPORT INFORMATION
  Report Type: Spontaneous
  Country: CL (occurrence: CL)
  Receive Date: 20181120
  Receipt Date: 20181120
  Transmission Date: 20190205
  Serious: Yes (Other)
  Sender: FDA-Public Use
  Company Number: CL-PFIZER INC-2018472079

PATIENT
  Age: 51 Year
  Sex: Female

DRUGS (1)
  1. XELJANZ [Suspect]
     Active Substance: TOFACITINIB CITRATE
     Indication: RHEUMATOID ARTHRITIS
     Dosage: 1 DF, DAILY
     Dates: start: 201810

REACTIONS (6)
  - Oral contusion [Unknown]
  - Contusion [Unknown]
  - Eye injury [Unknown]
  - Conjunctival haemorrhage [Unknown]
  - Capillary fragility [Unknown]
  - Angina bullosa haemorrhagica [Unknown]

NARRATIVE: CASE EVENT DATE: 201811
